FAERS Safety Report 24262098 (Version 3)
Quarter: 2024Q4

REPORT INFORMATION
  Report Type: Spontaneous
  Country: AR (occurrence: AR)
  Receive Date: 20240829
  Receipt Date: 20241008
  Transmission Date: 20250115
  Serious: Yes (Other)
  Sender: PUMA
  Company Number: AR-OEPI8P-1331

PATIENT

DRUGS (3)
  1. NERLYNX [Suspect]
     Active Substance: NERATINIB
     Indication: Breast cancer
     Dosage: THERAPY ONGOING.
     Route: 048
     Dates: start: 20230706
  2. LOPERAMIDE [Concomitant]
     Active Substance: LOPERAMIDE
     Indication: Product used for unknown indication
     Dosage: NOT AT THE MOMENT
  3. LETROZOLE [Concomitant]
     Active Substance: LETROZOLE
     Indication: Product used for unknown indication
     Dosage: UNK

REACTIONS (3)
  - Off label use [Unknown]
  - Breast cancer recurrent [Not Recovered/Not Resolved]
  - Product use issue [Recovered/Resolved]
